FAERS Safety Report 17562301 (Version 2)
Quarter: 2020Q1

REPORT INFORMATION
  Report Type: Spontaneous
  Country: US (occurrence: US)
  Receive Date: 20200319
  Receipt Date: 20200323
  Transmission Date: 20200409
  Serious: Yes (Other)
  Sender: FDA-Public Use
  Company Number: US-PFIZER INC-2020117313

PATIENT
  Age: 59 Year
  Sex: Male

DRUGS (1)
  1. NIFEDIPINE. [Suspect]
     Active Substance: NIFEDIPINE
     Dosage: 900 MG, SINGLE
     Route: 048

REACTIONS (4)
  - Pulmonary oedema [Unknown]
  - Overdose [Unknown]
  - Bradycardia [Unknown]
  - Shock [Recovered/Resolved]
